FAERS Safety Report 7003481-2 (Version None)
Quarter: 2010Q3

REPORT INFORMATION
  Report Type: 
  Country: None (occurrence: None)
  Receive Date: 20100916
  Receipt Date: 20100901
  Transmission Date: 20110219
  Serious: Yes (Life-Threatening)
  Sender: FDA-Public Use
  Company Number: GB-DEXPHARM-201013609

PATIENT
  Age: 19 Year
  Sex: Female

DRUGS (14)
  1. OMEPRAZOLE [Suspect]
  2. CICLOSPORIN ACTIVE SUBSTANCES: CICLOSPORIN [Suspect]
  3. ACYCLOVIR [Suspect]
  4. CASPOFUNGIN ACETATE [Suspect]
     Dosage: 70 MG MILLIGRAM(S) SEPARATE DOSAGES: 1, INTRAVENOUS
     Route: 042
  5. CHLORPHENIRAMINE MALEATE [Suspect]
     Dosage: 10 MG MILLIGRAM(S) SEPARATE DOSAGES: 4, INTRAVENOUS
     Route: 042
  6. ETOPOPHOS ACTIVE SUBSTANCES: ETOPOSIDE PHOSPHATE [Suspect]
     Dosage: INTRAVENOUS
     Route: 042
     Dates: start: 20070915, end: 20070915
  7. KETALAR [Suspect]
     Indication: PAIN
     Dates: start: 20070921, end: 20070928
  8. MORPHINE [Suspect]
     Dosage: INTRAVENOUS
     Route: 042
  9. NORETHISTERONE [Suspect]
     Dosage: 15 MG MILLIGRAM(S) SEPARATE DOSAGES: 3
  10. ONDANSETRON [Suspect]
     Dosage: 8 MG MILLIGRAM(S) SEPARATE DOSAGES: 3
  11. ACETAMINOPHEN [Suspect]
     Dosage: INTRAVENOUS
     Route: 042
  12. TAZOCIN ACTIVE SUBSTANCES: PIPERACILLIN SODIUM TAZOBACTAM SODIUM [Suspect]
     Dosage: 4.5 MG MILLIGRAM(S) SEPARATE DOSAGES: 3, INTRAVENOUS
     Route: 042
  13. VORICONAZOLE [Suspect]
     Dosage: 200 MG MILLIGRAM(S) SEPARATE DOSAGES: 2
  14. ALLOPURINOL [Suspect]
     Dosage: ORAL
     Route: 048

REACTIONS (3)
  - DILATATION INTRAHEPATIC DUCT ACQUIRED [None]
  - HEPATOTOXICITY [None]
  - VENOOCCLUSIVE LIVER DISEASE [None]
